FAERS Safety Report 24367283 (Version 3)
Quarter: 2024Q3

REPORT INFORMATION
  Report Type: Spontaneous
  Country: US (occurrence: US)
  Receive Date: 20240926
  Receipt Date: 20240930
  Transmission Date: 20241017
  Serious: Yes (Other)
  Sender: ASTELLAS
  Company Number: US-ASTELLAS-2024-AER-007875

PATIENT
  Age: 58 Year
  Sex: Female

DRUGS (2)
  1. VEOZAH [Suspect]
     Active Substance: FEZOLINETANT
     Indication: Menopausal symptoms
     Dosage: 45 MG ONCE A DAY AT NIGHT
     Route: 048
     Dates: start: 2024, end: 202406
  2. VEOZAH [Suspect]
     Active Substance: FEZOLINETANT
     Dosage: 45 MG ONCE A DAY AT NIGHT
     Route: 048
     Dates: start: 202406, end: 202408

REACTIONS (6)
  - Cholelithiasis [Recovering/Resolving]
  - Cough [Recovered/Resolved]
  - Malaise [Recovered/Resolved]
  - Urticaria [Recovered/Resolved]
  - Alanine aminotransferase increased [Not Recovered/Not Resolved]
  - Blood potassium decreased [Not Recovered/Not Resolved]

NARRATIVE: CASE EVENT DATE: 20240801
